FAERS Safety Report 9208234 (Version 4)
Quarter: 2013Q3

REPORT INFORMATION
  Report Type: Spontaneous
  Country: US (occurrence: US)
  Receive Date: 20130403
  Receipt Date: 20130715
  Transmission Date: 20140515
  Serious: Yes (Other)
  Sender: FDA-Public Use
  Company Number: US-JNJFOC-20130317526

PATIENT
  Age: 63 Year
  Sex: Female
  Weight: 55.79 kg

DRUGS (4)
  1. XARELTO [Suspect]
     Indication: THROMBOSIS PROPHYLAXIS
     Route: 048
     Dates: start: 20130111, end: 20130123
  2. XARELTO [Suspect]
     Indication: KNEE ARTHROPLASTY
     Route: 048
     Dates: start: 20130111, end: 20130123
  3. ASPIRIN [Suspect]
     Indication: ANTICOAGULANT THERAPY
     Route: 048
     Dates: start: 2013
  4. VITAMIN B [Concomitant]
     Indication: MEDICAL DIET
     Route: 065
     Dates: start: 2013

REACTIONS (9)
  - Haemorrhage [Recovering/Resolving]
  - Pain in extremity [Recovered/Resolved]
  - Immobile [Recovered/Resolved]
  - Ulcer [Unknown]
  - Pain in extremity [Recovering/Resolving]
  - Nerve compression [Not Recovered/Not Resolved]
  - Pain in extremity [Not Recovered/Not Resolved]
  - Local swelling [Recovered/Resolved]
  - Paraesthesia [Not Recovered/Not Resolved]
